FAERS Safety Report 6061072-4 (Version None)
Quarter: 2009Q1

REPORT INFORMATION
  Report Type: 
  Country: None (occurrence: None)
  Receive Date: 20090202
  Receipt Date: 20090123
  Transmission Date: 20090719
  Serious: Yes (Hospitalization, Other)
  Sender: FDA-Public Use
  Company Number: CA-PFIZER INC-2008153846

PATIENT

DRUGS (4)
  1. CHAMPIX [Suspect]
     Route: 048
  2. PROPANOL [Concomitant]
     Indication: ANGINA PECTORIS
     Dosage: 40 MG, 2X/DAY
  3. PROPANOL [Concomitant]
     Indication: HYPERTENSION
  4. ACETYLSALICYLIC ACID [Concomitant]

REACTIONS (6)
  - DIZZINESS [None]
  - MIGRAINE [None]
  - MUSCULOSKELETAL STIFFNESS [None]
  - PAIN [None]
  - PARALYSIS [None]
  - VOMITING [None]
